FAERS Safety Report 7677942-7 (Version None)
Quarter: 2011Q3

REPORT INFORMATION
  Report Type: 
  Country: None (occurrence: None)
  Receive Date: 20110811
  Receipt Date: 20110726
  Transmission Date: 20111222
  Serious: Yes (Hospitalization)
  Sender: FDA-Public Use
  Company Number: FR-PFIZER INC-2011181362

PATIENT
  Age: 82 Year
  Sex: Female

DRUGS (11)
  1. HYDROXYZINE [Suspect]
     Dosage: 25 MG, UNK
     Route: 048
     Dates: start: 20110101, end: 20110628
  2. MIANSERIN [Suspect]
     Dosage: 30 MG, DAILY
     Route: 048
     Dates: start: 20110602, end: 20110628
  3. FORLAX [Concomitant]
     Dosage: 4000 UNK, UNK
  4. FUROSEMIDE [Concomitant]
  5. ASPIRIN [Concomitant]
  6. DIGOXIN [Concomitant]
  7. ENALAPRIL MALEATE [Concomitant]
  8. TIAPRIDAL [Suspect]
     Dosage: 25 MG, 2X/DAY (5 MG/DROP)
     Route: 048
     Dates: start: 20110605, end: 20110628
  9. URBANYL [Concomitant]
  10. OMEPRAZOLE [Concomitant]
  11. PREDNISOLONE [Suspect]
     Dosage: 5 MG, DAILY
     Route: 048
     Dates: end: 20110628

REACTIONS (7)
  - CYTOLYTIC HEPATITIS [None]
  - VOMITING [None]
  - CHILLS [None]
  - PYREXIA [None]
  - ABDOMINAL PAIN [None]
  - HEPATITIS [None]
  - CHOLESTASIS [None]
